FAERS Safety Report 5144349-6 (Version None)
Quarter: 2006Q4

REPORT INFORMATION
  Report Type: 
  Country: None (occurrence: None)
  Receive Date: 20061030
  Receipt Date: 20061016
  Transmission Date: 20070319
  Serious: Yes (Hospitalization)
  Sender: FDA-Public Use
  Company Number: US200608006087

PATIENT
  Age: 74 Year
  Sex: Female
  Weight: 80.3 kg

DRUGS (2)
  1. FORTEO [Suspect]
     Indication: OSTEOPOROSIS
  2. FORTEO [Concomitant]

REACTIONS (3)
  - FALL [None]
  - INJURY [None]
  - RIB FRACTURE [None]
